FAERS Safety Report 5612047-8 (Version None)
Quarter: 2008Q1

REPORT INFORMATION
  Report Type: 
  Country: None (occurrence: None)
  Receive Date: 20080129
  Receipt Date: 20080129
  Transmission Date: 20080703
  Serious: Yes (Other)
  Sender: FDA-Public Use
  Company Number: None

PATIENT
  Sex: Female
  Weight: 66.2252 kg

DRUGS (1)
  1. VYTORIN [Suspect]
     Indication: BLOOD CHOLESTEROL INCREASED
     Dosage: ONE PILL PER DAY ONE A DAY PO
     Route: 048
     Dates: start: 20071202, end: 20071220

REACTIONS (7)
  - ANGINA PECTORIS [None]
  - DIZZINESS [None]
  - FATIGUE [None]
  - FEAR [None]
  - HYPERSOMNIA [None]
  - INFLUENZA [None]
  - NAUSEA [None]
